FAERS Safety Report 5912660-4 (Version None)
Quarter: 2008Q4

REPORT INFORMATION
  Report Type: 
  Country: None (occurrence: None)
  Receive Date: 20081008
  Receipt Date: 20081002
  Transmission Date: 20090506
  Serious: No
  Sender: FDA-Public Use
  Company Number: US-B.I. PHARMACEUTICALS,INC./RIDGEFIELD-2008-BP-11924BP

PATIENT
  Sex: Male

DRUGS (4)
  1. COMBIVENT [Suspect]
     Indication: CHRONIC OBSTRUCTIVE PULMONARY DISEASE
     Dosage: 8PUF
     Route: 055
     Dates: start: 20020101
  2. LOTREL [Concomitant]
     Indication: BLOOD PRESSURE INCREASED
     Route: 048
  3. LEVOXYL [Concomitant]
     Indication: THYROID THERAPY
     Route: 048
  4. SINGULAIR [Concomitant]
     Indication: DYSPNOEA
     Route: 048

REACTIONS (1)
  - DRUG INEFFECTIVE [None]
